FAERS Safety Report 14148079 (Version 4)
Quarter: 2019Q3

REPORT INFORMATION
  Report Type: Spontaneous
  Country: US (occurrence: US)
  Receive Date: 20171101
  Receipt Date: 20190709
  Transmission Date: 20191004
  Serious: No
  Sender: FDA-Public Use
  Company Number: US-PFIZER INC-2017463162

PATIENT
  Age: 62 Year
  Sex: Female
  Weight: 88.44 kg

DRUGS (2)
  1. SUTENT [Suspect]
     Active Substance: SUNITINIB MALATE
     Dosage: 25 MG, 1X/DAY
     Route: 048
     Dates: start: 2017, end: 201903
  2. SUTENT [Suspect]
     Active Substance: SUNITINIB MALATE
     Indication: MALIGNANT CONNECTIVE TISSUE NEOPLASM
     Dosage: 37.5 MG, DAILY

REACTIONS (4)
  - Off label use [Unknown]
  - Abdominal pain [Unknown]
  - Neoplasm progression [Unknown]
  - Product use in unapproved indication [Unknown]
